FAERS Safety Report 9912895 (Version 1)
Quarter: 2014Q1

REPORT INFORMATION
  Report Type: Spontaneous
  Country: US (occurrence: US)
  Receive Date: 20140220
  Receipt Date: 20140220
  Transmission Date: 20141002
  Serious: No
  Sender: FDA-Public Use
  Company Number: US-BAYER-2014-023607

PATIENT
  Sex: Female

DRUGS (8)
  1. BETASERON [Suspect]
     Indication: MULTIPLE SCLEROSIS
     Route: 058
  2. AMLODIPINE [Concomitant]
  3. GABAPENTIN [Concomitant]
  4. GLYCOLAX [Concomitant]
  5. OMEPRAZOLE [Concomitant]
  6. SENOKOT [Concomitant]
  7. VITAMIN B6 [Concomitant]
  8. CITRACAL [Concomitant]

REACTIONS (2)
  - Injection site pain [Recovered/Resolved]
  - Injection site erythema [Recovered/Resolved]
